FAERS Safety Report 8600373-X (Version None)
Quarter: 2012Q3

REPORT INFORMATION
  Report Type: 
  Country: None (occurrence: None)
  Receive Date: 20120817
  Receipt Date: 20120813
  Transmission Date: 20120928
  Serious: No
  Sender: FDA-Public Use
  Company Number: US-PFIZER INC-2012166270

PATIENT
  Age: 46 Year
  Sex: Female

DRUGS (1)
  1. GLIPIZIDE [Suspect]
     Dosage: UNK

REACTIONS (3)
  - PRODUCT SHAPE ISSUE [None]
  - HYPOGLYCAEMIA [None]
  - MALAISE [None]
